FAERS Safety Report 16365544 (Version 2)
Quarter: 2019Q3

REPORT INFORMATION
  Report Type: Spontaneous
  Country: US (occurrence: US)
  Receive Date: 20190529
  Receipt Date: 20190703
  Transmission Date: 20191004
  Serious: Yes (Hospitalization)
  Sender: FDA-Public Use
  Company Number: US-ROCHE-2328103

PATIENT
  Age: 75 Year
  Sex: Male

DRUGS (20)
  1. ESBRIET [Suspect]
     Active Substance: PIRFENIDONE
     Indication: IDIOPATHIC PULMONARY FIBROSIS
     Route: 048
     Dates: start: 20170725
  2. BENZONATATE. [Concomitant]
     Active Substance: BENZONATATE
  3. TAMSULOSIN [Concomitant]
     Active Substance: TAMSULOSIN
  4. DRONABINOL. [Concomitant]
     Active Substance: DRONABINOL
  5. FLUTICASONE. [Concomitant]
     Active Substance: FLUTICASONE
  6. SODIUM CHLORIDE. [Concomitant]
     Active Substance: SODIUM CHLORIDE
  7. URINOZINC [Concomitant]
  8. FUROSEMIDE. [Concomitant]
     Active Substance: FUROSEMIDE
  9. LINEZOLID. [Concomitant]
     Active Substance: LINEZOLID
  10. MIRTAZAPINE. [Concomitant]
     Active Substance: MIRTAZAPINE
  11. TOBRAMYCIN. [Concomitant]
     Active Substance: TOBRAMYCIN
  12. IPRATROPIUM [Concomitant]
     Active Substance: IPRATROPIUM
  13. NEBUSAL [Concomitant]
     Active Substance: SODIUM CHLORIDE
  14. ATORVASTATIN [Concomitant]
     Active Substance: ATORVASTATIN
  15. FINASTERIDE. [Concomitant]
     Active Substance: FINASTERIDE
  16. LEVOTHYROXINE. [Concomitant]
     Active Substance: LEVOTHYROXINE
  17. DOXYCYCLINE. [Concomitant]
     Active Substance: DOXYCYCLINE
  18. CEPHALEXINE [Concomitant]
     Active Substance: CEPHALEXIN
  19. ELIQUIS [Concomitant]
     Active Substance: APIXABAN
  20. NITROGLYCERIN. [Concomitant]
     Active Substance: NITROGLYCERIN

REACTIONS (2)
  - Pneumonia [Unknown]
  - Lung infection [Unknown]

NARRATIVE: CASE EVENT DATE: 20190518
